FAERS Safety Report 5370828-2 (Version None)
Quarter: 2007Q2

REPORT INFORMATION
  Report Type: 
  Country: None (occurrence: None)
  Receive Date: 20070614
  Receipt Date: 20070419
  Transmission Date: 20071010
  Serious: No
  Sender: FDA-Public Use
  Company Number: BDI-009434

PATIENT
  Age: 73 Year
  Sex: Female
  Weight: 68.18 kg

DRUGS (2)
  1. MULTIHANCE [Suspect]
     Indication: ARTERIOGRAM CAROTID
     Dosage: 25 ML ONCE IV
     Route: 042
     Dates: start: 20070406, end: 20070406
  2. MULTIHANCE [Suspect]
     Indication: NUCLEAR MAGNETIC RESONANCE IMAGING
     Dosage: 25 ML ONCE IV
     Route: 042
     Dates: start: 20070406, end: 20070406

REACTIONS (1)
  - VOMITING [None]
